FAERS Safety Report 24885790 (Version 2)
Quarter: 2025Q1

REPORT INFORMATION
  Report Type: Other
  Country: US (occurrence: US)
  Receive Date: 20250125
  Receipt Date: 20250217
  Transmission Date: 20250409
  Serious: Yes (Hospitalization, Other)
  Sender: TRAVERE THERAPEUTICS
  Company Number: US-TRAVERE-2025TVT00063

PATIENT
  Age: 71 Year
  Sex: Male

DRUGS (6)
  1. FILSPARI [Suspect]
     Active Substance: SPARSENTAN
     Indication: IgA nephropathy
     Route: 048
     Dates: start: 20240125, end: 202412
  2. TORSEMIDE [Concomitant]
     Active Substance: TORSEMIDE
  3. CARVEDILOL [Concomitant]
     Active Substance: CARVEDILOL
  4. OTC iron [Concomitant]
  5. PLAVIX [Concomitant]
     Active Substance: CLOPIDOGREL BISULFATE
  6. VITAMIN D [Concomitant]
     Active Substance: VITAMIN D NOS

REACTIONS (7)
  - Pneumonia streptococcal [Recovering/Resolving]
  - Myocardial infarction [Unknown]
  - Acute kidney injury [Unknown]
  - Infectious pleural effusion [Unknown]
  - Coronary artery disease [Unknown]
  - Anaemia [Unknown]
  - Insulin-requiring type 2 diabetes mellitus [Unknown]

NARRATIVE: CASE EVENT DATE: 20241225
